FAERS Safety Report 8462411-7 (Version None)
Quarter: 2012Q2

REPORT INFORMATION
  Report Type: 
  Country: None (occurrence: None)
  Receive Date: 20120625
  Receipt Date: 20120611
  Transmission Date: 20120825
  Serious: No
  Sender: FDA-Public Use
  Company Number: US-JNJFOC-20120605535

PATIENT
  Sex: Female
  Weight: 68.04 kg

DRUGS (1)
  1. DURAGESIC-100 [Suspect]
     Indication: NERVOUS SYSTEM DISORDER
     Route: 062
     Dates: start: 20070101

REACTIONS (7)
  - INFLUENZA LIKE ILLNESS [None]
  - FEELING ABNORMAL [None]
  - MALAISE [None]
  - WRONG TECHNIQUE IN DRUG USAGE PROCESS [None]
  - POOR QUALITY DRUG ADMINISTERED [None]
  - HEADACHE [None]
  - ABDOMINAL PAIN UPPER [None]
